FAERS Safety Report 5115271-6 (Version None)
Quarter: 2006Q3

REPORT INFORMATION
  Report Type: 
  Country: None (occurrence: None)
  Receive Date: 20060926
  Receipt Date: 20060921
  Transmission Date: 20061208
  Serious: Yes (Death, Hospitalization)
  Sender: FDA-Public Use
  Company Number: US-JNJOC-2006090032

PATIENT
  Age: 58 Year
  Sex: Male

DRUGS (8)
  1. TOPOTECAN [Suspect]
     Dosage: 1MGM2 CYCLIC
     Route: 042
     Dates: start: 20000918
  2. TIPIFARNIB [Suspect]
     Dosage: 300MG TWICE PER DAY
     Route: 048
     Dates: start: 20060918
  3. LOVENOX [Concomitant]
  4. OXYCONTIN [Concomitant]
  5. PERCOCET [Concomitant]
  6. SELENIUM SULFIDE [Concomitant]
  7. VITAMIN E [Concomitant]
  8. ENZYMES [Concomitant]

REACTIONS (9)
  - ABDOMINAL DISTENSION [None]
  - CARDIAC ARREST [None]
  - CONFUSIONAL STATE [None]
  - GRAND MAL CONVULSION [None]
  - ILEUS [None]
  - LETHARGY [None]
  - SEPSIS [None]
  - SINUS BRADYCARDIA [None]
  - SOMNOLENCE [None]
